FAERS Safety Report 9416217 (Version 2)
Quarter: 2013Q3

REPORT INFORMATION
  Report Type: Spontaneous
  Country: DE (occurrence: None)
  Receive Date: 20130718
  Receipt Date: 20130816
  Transmission Date: 20140515
  Serious: Yes (Other)
  Sender: FDA-Public Use
  Company Number: JPI-P-033717

PATIENT
  Age: 39 Year
  Sex: Female

DRUGS (1)
  1. SODIUM OXYBATE [Suspect]
     Indication: CATAPLEXY
     Route: 048

REACTIONS (2)
  - Sleep apnoea syndrome [None]
  - Cheyne-Stokes respiration [None]
